FAERS Safety Report 25090779 (Version 1)
Quarter: 2025Q1

REPORT INFORMATION
  Report Type: Spontaneous
  Country: US (occurrence: None)
  Receive Date: 20250318
  Receipt Date: 20250318
  Transmission Date: 20250409
  Serious: Yes (Disabling, Other)
  Sender: FDA-CTU
  Company Number: None

PATIENT

DRUGS (1)
  1. OLANZAPINE [Suspect]
     Active Substance: OLANZAPINE

REACTIONS (5)
  - Somnolence [None]
  - Lethargy [None]
  - Brain fog [None]
  - Bradyphrenia [None]
  - Asthenopia [None]

NARRATIVE: CASE EVENT DATE: 20240826
